FAERS Safety Report 8136249-4 (Version None)
Quarter: 2012Q1

REPORT INFORMATION
  Report Type: 
  Country: None (occurrence: None)
  Receive Date: 20120214
  Receipt Date: 20120130
  Transmission Date: 20120608
  Serious: Yes (Other)
  Sender: FDA-Public Use
  Company Number: AU-WATSON-2012-02006

PATIENT
  Age: 57 Year
  Sex: Male

DRUGS (1)
  1. BACLOFEN [Suspect]
     Indication: ALCOHOLISM
     Dosage: 100-150MG
     Route: 065

REACTIONS (1)
  - BACK PAIN [None]
